FAERS Safety Report 9154627 (Version 1)
Quarter: 2013Q1

REPORT INFORMATION
  Report Type: Spontaneous
  Country: US (occurrence: None)
  Receive Date: 20130305
  Receipt Date: 20130305
  Transmission Date: 20140127
  Serious: No
  Sender: FDA-Public Use
  Company Number: None

PATIENT
  Age: 55 Year
  Sex: Female
  Weight: 113.4 kg

DRUGS (1)
  1. GENERIC DIOVAN/HCT (VALSARTAN-HCTZ) 160/25MG [Suspect]
     Indication: HYPERTENSION
     Dosage: 160/25 DAILY ORAL?JAN 16-}FEB 12

REACTIONS (2)
  - Oedema peripheral [None]
  - Product substitution issue [None]
